FAERS Safety Report 14413683 (Version 7)
Quarter: 2019Q2

REPORT INFORMATION
  Report Type: Spontaneous
  Country: US (occurrence: US)
  Receive Date: 20180119
  Receipt Date: 20190508
  Transmission Date: 20190711
  Serious: Yes (Death, Life-Threatening, Hospitalization)
  Sender: FDA-Public Use
  Company Number: US-ACTELION-A-NJ2018-165449

PATIENT
  Age: 57 Year
  Sex: Female

DRUGS (14)
  1. METOPROLOL. [Concomitant]
     Active Substance: METOPROLOL
  2. GABAPENTIN. [Concomitant]
     Active Substance: GABAPENTIN
  3. ORENITRAM [Suspect]
     Active Substance: TREPROSTINIL
     Indication: PRODUCT USED FOR UNKNOWN INDICATION
     Dosage: 4.5 MG, BID
     Route: 065
  4. ORENITRAM [Suspect]
     Active Substance: TREPROSTINIL
     Dosage: 3.5 MG, TID
     Route: 048
  5. TORSEMIDE. [Concomitant]
     Active Substance: TORSEMIDE
  6. NOVOLIN [Concomitant]
     Active Substance: INSULIN HUMAN
  7. TYLENOL [Concomitant]
     Active Substance: ACETAMINOPHEN
  8. BREO ELLIPTA [Concomitant]
     Active Substance: FLUTICASONE FUROATE\VILANTEROL TRIFENATATE
  9. DILTIAZEM. [Concomitant]
     Active Substance: DILTIAZEM
  10. OPSUMIT [Suspect]
     Active Substance: MACITENTAN
     Indication: PULMONARY ARTERIAL HYPERTENSION
     Dosage: 10 MG, QD
     Route: 048
     Dates: start: 20170706, end: 20190414
  11. SINGULAIR [Concomitant]
     Active Substance: MONTELUKAST SODIUM
  12. ORENITRAM [Suspect]
     Active Substance: TREPROSTINIL
     Dosage: 3 MG, TID
     Route: 065
  13. LEVOTHYROXINE. [Concomitant]
     Active Substance: LEVOTHYROXINE
  14. BUPROPION. [Concomitant]
     Active Substance: BUPROPION

REACTIONS (9)
  - Headache [Not Recovered/Not Resolved]
  - Pulmonary hypertension [Fatal]
  - Renal failure [Unknown]
  - Condition aggravated [Not Recovered/Not Resolved]
  - Confusional state [Recovered/Resolved]
  - Fluid retention [Recovering/Resolving]
  - Hypotension [Not Recovered/Not Resolved]
  - Dysphagia [Unknown]
  - Pneumonia [Unknown]

NARRATIVE: CASE EVENT DATE: 201807
